FAERS Safety Report 10618818 (Version 1)
Quarter: 2014Q4

REPORT INFORMATION
  Report Type: Spontaneous
  Country: ES (occurrence: None)
  Receive Date: 20141126
  Receipt Date: 20141126
  Transmission Date: 20150529
  Serious: Yes (Hospitalization, Other)
  Sender: FDA-Public Use
  Company Number: ADR-2014-02241

PATIENT
  Age: 61 Year
  Sex: Male

DRUGS (9)
  1. LIORESAL [Suspect]
     Active Substance: BACLOFEN
     Route: 048
     Dates: start: 20140127, end: 20140204
  2. FERPLEX (IRON SUCCINYL-PROTEIN COMPLEX) [Suspect]
     Active Substance: IRON PROTEIN SUCCINYLATE
  3. ALLOPURINOL. [Suspect]
     Active Substance: ALLOPURINOL
  4. RIVOTRIL [Suspect]
     Active Substance: CLONAZEPAM
     Dates: start: 20140127, end: 20140204
  5. NEURONTIN [Suspect]
     Active Substance: GABAPENTIN
     Route: 048
     Dates: start: 20140127, end: 20140204
  6. OMNIC OCAS [Suspect]
     Active Substance: TAMSULOSIN HYDROCHLORIDE
  7. FOLIDOCE [Suspect]
     Active Substance: CYANOCOBALAMIN\FOLIC ACID
  8. SEROPRAM [Suspect]
     Active Substance: CITALOPRAM HYDROBROMIDE
  9. TROMALYT [Suspect]
     Active Substance: ASPIRIN

REACTIONS (1)
  - Metabolic encephalopathy [None]

NARRATIVE: CASE EVENT DATE: 20140128
